FAERS Safety Report 7674963-5 (Version None)
Quarter: 2011Q3

REPORT INFORMATION
  Report Type: 
  Country: None (occurrence: None)
  Receive Date: 20110810
  Receipt Date: 20110808
  Transmission Date: 20111222
  Serious: Yes (Death, Life-Threatening, Hospitalization)
  Sender: FDA-Public Use
  Company Number: DE-SANOFI-AVENTIS-2011SA041073

PATIENT
  Age: 76 Year
  Sex: Female

DRUGS (6)
  1. ENOXAPARIN SODIUM [Suspect]
     Route: 058
     Dates: start: 20110127, end: 20110221
  2. ABILIFY [Suspect]
     Route: 048
     Dates: start: 20110110, end: 20110131
  3. LEVOTHYROXINE SODIUM [Concomitant]
     Indication: HYPOTHYROIDISM
     Route: 048
     Dates: end: 20110319
  4. SOLIAN [Concomitant]
     Route: 065
     Dates: end: 20110109
  5. SPASMEX [Concomitant]
     Route: 048
     Dates: end: 20110319
  6. OXAZEPAM [Concomitant]
     Route: 048
     Dates: end: 20110319

REACTIONS (5)
  - PNEUMONIA [None]
  - AGRANULOCYTOSIS [None]
  - DEATH [None]
  - PYREXIA [None]
  - C-REACTIVE PROTEIN INCREASED [None]
